FAERS Safety Report 24660099 (Version 1)
Quarter: 2024Q4

REPORT INFORMATION
  Report Type: Spontaneous
  Country: US (occurrence: US)
  Receive Date: 20241125
  Receipt Date: 20241125
  Transmission Date: 20250114
  Serious: No
  Sender: SANDOZ
  Company Number: US-SANDOZ-SDZ2024US097633

PATIENT
  Sex: Female

DRUGS (1)
  1. BETAMETHASONE DIPROPIONATE [Suspect]
     Active Substance: BETAMETHASONE DIPROPIONATE
     Indication: Product used for unknown indication
     Dosage: UNK UNK, BID (LOTION)
     Route: 065

REACTIONS (4)
  - Poor quality product administered [Unknown]
  - Patient dissatisfaction with treatment [Unknown]
  - Product physical consistency issue [Unknown]
  - Product odour abnormal [Unknown]
